FAERS Safety Report 10211111 (Version 1)
Quarter: 2014Q2

REPORT INFORMATION
  Report Type: Spontaneous
  Country: IT (occurrence: None)
  Receive Date: 20140528
  Receipt Date: 20140528
  Transmission Date: 20141212
  Serious: Yes (Hospitalization)
  Sender: FDA-Public Use
  Company Number: SYM-2014-21262

PATIENT
  Age: 82 Year
  Sex: Female

DRUGS (6)
  1. TILDIEM [Suspect]
     Indication: HYPERTENSION
     Route: 048
     Dates: start: 20140101, end: 20140423
  2. TRIATEC [Suspect]
     Indication: HYPERTENSION
     Route: 048
     Dates: start: 20140101, end: 20140423
  3. LASIX [Suspect]
     Indication: HYPERTENSION
     Route: 048
     Dates: start: 20140101, end: 20140423
  4. CALCIUM (CALCIUM) [Concomitant]
  5. MEDROL (METHYLPREDNISOLONE) (METHYLPREDNISOLONE) [Concomitant]
  6. COUMADIN (WARFARIN SODIUM) (WARFARIN SODIUM) [Concomitant]

REACTIONS (5)
  - Presyncope [None]
  - Dyspnoea [None]
  - Constipation [None]
  - Hyperhidrosis [None]
  - Orthostatic hypotension [None]
